FAERS Safety Report 17083597 (Version 3)
Quarter: 2025Q4

REPORT INFORMATION
  Report Type: Spontaneous
  Country: US (occurrence: US)
  Receive Date: 20191127
  Receipt Date: 20251203
  Transmission Date: 20260118
  Serious: No
  Sender: JOHNSON AND JOHNSON
  Company Number: US-JNJFOC-20191140051

PATIENT
  Sex: Male

DRUGS (12)
  1. RISPERDAL [Suspect]
     Active Substance: RISPERIDONE
     Indication: Impulse-control disorder
     Route: 065
  2. RISPERDAL [Suspect]
     Active Substance: RISPERIDONE
     Indication: Sleep disorder
     Route: 048
     Dates: start: 20130911
  3. RISPERDAL [Suspect]
     Active Substance: RISPERIDONE
     Route: 048
     Dates: start: 20140624, end: 20141205
  4. RISPERDAL [Suspect]
     Active Substance: RISPERIDONE
  5. RISPERDAL [Suspect]
     Active Substance: RISPERIDONE
  6. RISPERDAL [Suspect]
     Active Substance: RISPERIDONE
  7. RISPERIDONE [Suspect]
     Active Substance: RISPERIDONE
     Indication: Impulse-control disorder
     Route: 065
     Dates: start: 20130911
  8. RISPERIDONE [Suspect]
     Active Substance: RISPERIDONE
     Indication: Sleep disorder
     Route: 065
     Dates: start: 20140624, end: 20141205
  9. RISPERIDONE [Suspect]
     Active Substance: RISPERIDONE
  10. RISPERIDONE [Suspect]
     Active Substance: RISPERIDONE
  11. RISPERIDONE [Suspect]
     Active Substance: RISPERIDONE
  12. RISPERIDONE [Suspect]
     Active Substance: RISPERIDONE

REACTIONS (3)
  - Gynaecomastia [Unknown]
  - Emotional disorder [Unknown]
  - Drug ineffective [Unknown]
